FAERS Safety Report 23028984 (Version 2)
Quarter: 2023Q4

REPORT INFORMATION
  Report Type: Report from Study
  Country: CA (occurrence: CA)
  Receive Date: 20231004
  Receipt Date: 20231018
  Transmission Date: 20240110
  Serious: Yes (Death)
  Sender: FDA-Public Use
  Company Number: CA-002147023-NVSC2023CA212268

PATIENT
  Age: 66 Year
  Sex: Female

DRUGS (1)
  1. LUTATHERA [Suspect]
     Active Substance: LUTETIUM OXODOTREOTIDE LU-177
     Indication: Neuroendocrine tumour
     Dosage: 200 Q8W/U
     Route: 042
     Dates: start: 20230623, end: 20230818

REACTIONS (1)
  - Death [Fatal]

NARRATIVE: CASE EVENT DATE: 20230921
